FAERS Safety Report 18015109 (Version 1)
Quarter: 2020Q3

REPORT INFORMATION
  Report Type: Spontaneous
  Country: US (occurrence: US)
  Receive Date: 20200713
  Receipt Date: 20200713
  Transmission Date: 20201103
  Serious: No
  Sender: FDA-Public Use
  Company Number: US-FOUNDATIONCONSUMERHC-2020-US-011875

PATIENT
  Age: 16 Year
  Sex: Female
  Weight: 72.58 kg

DRUGS (2)
  1. UNSPECIFIED ASTHMA MEDICATION [Concomitant]
  2. PLAN B ONE?STEP [Suspect]
     Active Substance: LEVONORGESTREL
     Indication: POST COITAL CONTRACEPTION
     Dosage: 1.5 MG X 1 DOSE
     Route: 048

REACTIONS (2)
  - Menstruation delayed [Unknown]
  - Vaginal haemorrhage [Recovered/Resolved]
